FAERS Safety Report 12276105 (Version 1)
Quarter: 2016Q2

REPORT INFORMATION
  Report Type: Spontaneous
  Country: RU (occurrence: RU)
  Receive Date: 20160418
  Receipt Date: 20160418
  Transmission Date: 20160815
  Serious: Yes (Life-Threatening, Hospitalization)
  Sender: FDA-Public Use
  Company Number: RU-BAYER-2016-066403

PATIENT
  Age: 35 Year
  Sex: Male

DRUGS (1)
  1. AVELOX [Suspect]
     Active Substance: MOXIFLOXACIN HYDROCHLORIDE
     Dosage: UNK
     Route: 048

REACTIONS (5)
  - Pallor [Recovering/Resolving]
  - Nausea [Recovering/Resolving]
  - Loss of consciousness [Recovering/Resolving]
  - Choking sensation [Recovering/Resolving]
  - Throat irritation [Recovering/Resolving]
